FAERS Safety Report 22212549 (Version 1)
Quarter: 2023Q2

REPORT INFORMATION
  Report Type: Spontaneous
  Country: US (occurrence: US)
  Receive Date: 20230414
  Receipt Date: 20230414
  Transmission Date: 20230722
  Serious: No
  Sender: FDA-Public Use
  Company Number: US-JNJFOC-20200314858

PATIENT
  Sex: Female
  Weight: 59.474 kg

DRUGS (1)
  1. IMODIUM A-D [Suspect]
     Active Substance: LOPERAMIDE HYDROCHLORIDE
     Indication: Colitis microscopic
     Dosage: 1 CAPLET EACH 5 TO 7 TIMES A DAY
     Route: 048

REACTIONS (2)
  - Incorrect dose administered [Unknown]
  - Product packaging difficult to open [Unknown]
